FAERS Safety Report 8491543-2 (Version None)
Quarter: 2012Q3

REPORT INFORMATION
  Report Type: 
  Country: None (occurrence: None)
  Receive Date: 20120706
  Receipt Date: 20120629
  Transmission Date: 20120928
  Serious: Yes (Hospitalization)
  Sender: FDA-Public Use
  Company Number: JP-JNJFOC-20120602568

PATIENT
  Age: 8 Decade
  Sex: Female

DRUGS (6)
  1. ANTIHYPERTENSIVE [Concomitant]
     Route: 065
  2. PRIMPERAN TAB [Concomitant]
     Route: 065
  3. TRAMADOL HCL [Suspect]
     Indication: PAIN
     Dosage: 3 TIMES DAILY
     Route: 048
     Dates: start: 20120524
  4. TRAMADOL HCL [Suspect]
     Dosage: 1 PER DAY
     Route: 048
     Dates: start: 20120510, end: 20120510
  5. NEUTROGIN [Concomitant]
     Route: 065
  6. TRAMADOL HCL [Suspect]
     Dosage: 2TIMES DAILY
     Route: 048
     Dates: start: 20120511, end: 20120523

REACTIONS (5)
  - DEHYDRATION [None]
  - NAUSEA [None]
  - HYPOAESTHESIA [None]
  - CEREBRAL INFARCTION [None]
  - TREMOR [None]
